FAERS Safety Report 9323600 (Version 2)
Quarter: 2013Q3

REPORT INFORMATION
  Report Type: Spontaneous
  Country: IT (occurrence: IT)
  Receive Date: 20130603
  Receipt Date: 20130808
  Transmission Date: 20140515
  Serious: Yes (Death, Life-Threatening)
  Sender: FDA-Public Use
  Company Number: IT-SANOFI-AVENTIS-2013SA051512

PATIENT
  Age: 69 Year
  Sex: Male
  Weight: 95 kg

DRUGS (3)
  1. JEVTANA [Suspect]
     Indication: PROSTATE CANCER METASTATIC
     Route: 042
     Dates: start: 20130226, end: 20130226
  2. PARACETAMOL [Concomitant]
     Indication: ANALGESIC THERAPY
     Dates: start: 20130226, end: 20130306
  3. GRANULOKINE [Concomitant]
     Indication: COLONY STIMULATING FACTOR PROPHYLAXIS
     Route: 058
     Dates: start: 20130228, end: 20130302

REACTIONS (3)
  - Acute respiratory distress syndrome [Fatal]
  - Sepsis [Fatal]
  - Febrile neutropenia [Unknown]
